FAERS Safety Report 6871706-X (Version None)
Quarter: 2010Q3

REPORT INFORMATION
  Report Type: 
  Country: None (occurrence: None)
  Receive Date: 20100723
  Receipt Date: 20100702
  Transmission Date: 20110219
  Serious: Yes (Hospitalization)
  Sender: FDA-Public Use
  Company Number: A0833954A

PATIENT
  Age: 75 Year
  Sex: Male
  Weight: 109.1 kg

DRUGS (9)
  1. AVANDIA [Suspect]
     Dosage: 8MG PER DAY
     Route: 048
     Dates: start: 20030101, end: 20080816
  2. HYDROCHLOROTHIAZIDE [Concomitant]
  3. RAMIPRIL [Concomitant]
  4. GLUCOPHAGE [Concomitant]
  5. METOPROLOL SUCCINATE [Concomitant]
  6. GLIPIZIDE [Concomitant]
  7. LIPITOR [Concomitant]
  8. INSULIN [Concomitant]
  9. ASPIRIN [Concomitant]

REACTIONS (1)
  - CEREBROVASCULAR ACCIDENT [None]
